FAERS Safety Report 7032364-7 (Version None)
Quarter: 2010Q4

REPORT INFORMATION
  Report Type: 
  Country: None (occurrence: None)
  Receive Date: 20101007
  Receipt Date: 20100813
  Transmission Date: 20110411
  Serious: Yes (Death, Hospitalization)
  Sender: FDA-Public Use
  Company Number: DE-BRISTOL-MYERS SQUIBB COMPANY-15210180

PATIENT
  Age: 61 Year
  Sex: Male

DRUGS (11)
  1. CETUXIMAB [Suspect]
     Indication: COLORECTAL CANCER
     Dosage: RECENT INF ON 12-JUL-2010.
     Route: 042
     Dates: start: 20100616, end: 20100712
  2. FOLINIC ACID [Suspect]
     Indication: COLORECTAL CANCER
     Dosage: RECENT INF ON 12-JUL-2010.
     Route: 042
     Dates: start: 20100616, end: 20100712
  3. FLUOROURACIL [Suspect]
     Indication: COLORECTAL CANCER
     Dosage: RECENT INF ON 12-JUL-2010.
     Route: 042
     Dates: start: 20100616, end: 20100712
  4. OXALIPLATIN [Suspect]
     Indication: COLORECTAL CANCER
     Dosage: RECENT INF ON 12-JUL-2010.
     Route: 042
     Dates: start: 20100616, end: 20100712
  5. CALCIUM [Concomitant]
     Dosage: ONGOING.
     Dates: start: 20000101
  6. ARAVA [Concomitant]
     Dosage: 1 DF:10 UNIT NOT SPECIFIED. ONGOING.
     Dates: start: 20070101
  7. PREDNISOLONE [Concomitant]
     Dosage: ONGOING.
     Dates: start: 20070101
  8. METOPROLOL TARTRATE [Concomitant]
  9. MEVALOTIN [Concomitant]
     Dosage: ONGOING.
     Dates: start: 20050101
  10. OMEPRAZOLE [Concomitant]
     Dosage: 1 DF: 20 UNIT NOT SPECIFIED. ONGOING.
     Dates: start: 20000101
  11. EMBOLEX [Concomitant]
     Dosage: 1 DF=3000 UNIT NOT SPECIFIED. ONGOING.
     Route: 058
     Dates: start: 20100601

REACTIONS (1)
  - DIARRHOEA [None]
